FAERS Safety Report 17870097 (Version 1)
Quarter: 2020Q2

REPORT INFORMATION
  Report Type: Spontaneous
  Country: US (occurrence: US)
  Receive Date: 20200605
  Receipt Date: 20200605
  Transmission Date: 20200714
  Serious: Yes (Other)
  Sender: FDA-Public Use
  Company Number: None

PATIENT
  Age: 69 Year
  Sex: Female
  Weight: 95.85 kg

DRUGS (19)
  1. ZANTAC [Concomitant]
     Active Substance: RANITIDINE HYDROCHLORIDE
  2. IVIG [Concomitant]
     Active Substance: HUMAN IMMUNOGLOBULIN G
  3. LIALDA [Concomitant]
     Active Substance: MESALAMINE
  4. EXEMESTANE. [Concomitant]
     Active Substance: EXEMESTANE
  5. CALCIUM + VITAMIN D [Concomitant]
     Active Substance: CALCIUM\VITAMIN D
  6. SPIRIVA [Concomitant]
     Active Substance: TIOTROPIUM BROMIDE MONOHYDRATE
  7. SIMVASTATIN. [Concomitant]
     Active Substance: SIMVASTATIN
  8. CANASA [Concomitant]
     Active Substance: MESALAMINE
  9. EVEROLIMUS. [Suspect]
     Active Substance: EVEROLIMUS
     Indication: BREAST CANCER
     Route: 048
     Dates: start: 20200207
  10. VITAMIN C [Concomitant]
     Active Substance: ASCORBIC ACID
  11. MICAFUNGIN. [Concomitant]
     Active Substance: MICAFUNGIN SODIUM
  12. FLOVENT HFA [Concomitant]
     Active Substance: FLUTICASONE PROPIONATE
  13. VITAMIN B1 [Concomitant]
     Active Substance: THIAMINE HYDROCHLORIDE
  14. MIRAPEX [Concomitant]
     Active Substance: PRAMIPEXOLE DIHYDROCHLORIDE
  15. RECLAST [Concomitant]
     Active Substance: ZOLEDRONIC ACID
  16. DEXAMETHASONE. [Concomitant]
     Active Substance: DEXAMETHASONE
  17. DILTIAZEM. [Concomitant]
     Active Substance: DILTIAZEM
  18. PREDNISONE. [Concomitant]
     Active Substance: PREDNISONE
  19. APRISO [Concomitant]
     Active Substance: MESALAMINE

REACTIONS (1)
  - Disease progression [None]
